FAERS Safety Report 9524039 (Version 1)
Quarter: 2013Q1

REPORT INFORMATION
  Report Type: Spontaneous
  Country: US (occurrence: None)
  Receive Date: 20130313
  Receipt Date: 20130313
  Transmission Date: 20140127
  Serious: No
  Sender: FDA-Public Use
  Company Number: 1000040518

PATIENT
  Age: 61 Year
  Sex: Female

DRUGS (7)
  1. SAVELLA (MILNACIPRAN HYDROCHLORIDE) (12.5 MILLIGRAM, TABLETS) [Suspect]
     Indication: FIBROMYALGIA
     Dosage: 12.5 MG, 1 IN 1 D, ORAL
     Route: 048
     Dates: start: 201210, end: 201210
  2. SAVELLA (MILNACIPRAN HYDROCHLORIDE) (50 MILLIGRAM, TABLETS) [Suspect]
     Indication: FIBROMYALGIA
     Dosage: 50 MG, 2 IN 1 D, ORAL
     Route: 048
     Dates: start: 201210, end: 201210
  3. LEVOTHYROXINE (LEVOTHYROXINE SODIUM) [Concomitant]
  4. AMLODIPINE [Concomitant]
  5. AVALIDE (KARVEA HCT) [Concomitant]
  6. BYSTOLIC (NEBIVOLOL HYDROCHLORIDE) [Concomitant]
  7. SIMVASTATIN (SIMVASTATIN) [Concomitant]

REACTIONS (4)
  - Headache [None]
  - Dry mouth [None]
  - Nausea [None]
  - Constipation [None]
